FAERS Safety Report 4476319-5 (Version None)
Quarter: 2004Q4

REPORT INFORMATION
  Report Type: 
  Country: None (occurrence: None)
  Receive Date: 20041016
  Receipt Date: 20041008
  Transmission Date: 20050328
  Serious: Yes (Death, Hospitalization)
  Sender: FDA-Public Use
  Company Number: AU-MERCK-0410AUS00119

PATIENT
  Age: 76 Year
  Sex: Female

DRUGS (2)
  1. VIOXX [Suspect]
     Indication: ARTHROPATHY
     Route: 048
     Dates: start: 20031201, end: 20040118
  2. WARFARIN [Concomitant]
     Route: 065
     Dates: start: 20030801

REACTIONS (2)
  - CEREBROVASCULAR ACCIDENT [None]
  - COMA [None]
